FAERS Safety Report 5050936-6 (Version None)
Quarter: 2006Q3

REPORT INFORMATION
  Report Type: 
  Country: None (occurrence: None)
  Receive Date: 20060713
  Receipt Date: 20060403
  Transmission Date: 20061208
  Serious: Yes (Disabling)
  Sender: FDA-Public Use
  Company Number: FR-ABBOTT-06P-056-0330175-00

PATIENT
  Age: 52 Year
  Sex: Female
  Weight: 85 kg

DRUGS (10)
  1. CHIROCAINE [Suspect]
     Indication: ANALGESIC EFFECT
     Dates: start: 20051122, end: 20051122
  2. ATENOLOL [Concomitant]
     Indication: DRUG USE FOR UNKNOWN INDICATION
  3. SPIRONOLACTONE [Concomitant]
     Indication: DRUG USE FOR UNKNOWN INDICATION
  4. CITALOPRAM [Concomitant]
     Indication: DRUG USE FOR UNKNOWN INDICATION
  5. OXAZEPAM [Concomitant]
     Indication: DRUG USE FOR UNKNOWN INDICATION
  6. BROMAZEPAM [Concomitant]
     Indication: DRUG USE FOR UNKNOWN INDICATION
  7. DICLOFENAC [Concomitant]
     Indication: DRUG USE FOR UNKNOWN INDICATION
  8. ACETAMINOPHEN W/ CODEINE [Concomitant]
     Indication: DRUG USE FOR UNKNOWN INDICATION
  9. CLONIDINE [Concomitant]
     Indication: ANAESTHESIA
     Dosage: 75 GAMMA
  10. ANAESTHETICS, GENERAL [Concomitant]
     Indication: ANAESTHESIA

REACTIONS (2)
  - DYSAESTHESIA [None]
  - NEUROPATHY [None]
